FAERS Safety Report 4709160-6 (Version None)
Quarter: 2005Q3

REPORT INFORMATION
  Report Type: 
  Country: None (occurrence: None)
  Receive Date: 20050706
  Receipt Date: 20050627
  Transmission Date: 20060218
  Serious: Yes (Other)
  Sender: FDA-Public Use
  Company Number: 2005077493

PATIENT
  Age: 59 Year
  Sex: Female
  Weight: 90.7194 kg

DRUGS (3)
  1. ZYVOX [Suspect]
     Indication: INFECTION
     Dosage: 1200 MG (600 MG, TWICE DAILY), ORAL
     Route: 048
     Dates: start: 20041024, end: 20050218
  2. NEURONTIN [Concomitant]
  3. RIFAMPICIN [Concomitant]

REACTIONS (4)
  - CANDIDIASIS [None]
  - GENERALISED ERYTHEMA [None]
  - RASH [None]
  - STAPHYLOCOCCAL INFECTION [None]
